FAERS Safety Report 17143841 (Version 2)
Quarter: 2019Q4

REPORT INFORMATION
  Report Type: Spontaneous
  Country: US (occurrence: US)
  Receive Date: 20191212
  Receipt Date: 20191230
  Transmission Date: 20200122
  Serious: No
  Sender: FDA-Public Use
  Company Number: US-MYLANLABS-2019M1116813

PATIENT
  Age: 54 Year
  Sex: Male
  Weight: 85 kg

DRUGS (2)
  1. ARMODAFINIL TABLETS [Suspect]
     Active Substance: ARMODAFINIL
     Indication: SLEEP APNOEA SYNDROME
     Dosage: DAILY
     Route: 048
     Dates: start: 20191124, end: 20191210
  2. ARMODAFINIL TABLETS [Suspect]
     Active Substance: ARMODAFINIL
     Indication: SOMNOLENCE

REACTIONS (10)
  - Insomnia [Recovered/Resolved]
  - Product dose omission [Unknown]
  - Therapeutic product effect increased [Recovered/Resolved]
  - Anxiety [Unknown]
  - Panic attack [Unknown]
  - Hypervigilance [Not Recovered/Not Resolved]
  - Tremor [Recovered/Resolved]
  - Libido disorder [Unknown]
  - Wrong technique in product usage process [Unknown]
  - Constipation [Recovered/Resolved]

NARRATIVE: CASE EVENT DATE: 20191124
